FAERS Safety Report 7135640-2 (Version None)
Quarter: 2010Q4

REPORT INFORMATION
  Report Type: 
  Country: None (occurrence: None)
  Receive Date: 20101203
  Receipt Date: 20101119
  Transmission Date: 20110411
  Serious: Yes (Life-Threatening, Hospitalization)
  Sender: FDA-Public Use
  Company Number: DE-AMGEN-DEUSP2010006678

PATIENT

DRUGS (4)
  1. ENBREL [Suspect]
     Indication: RHEUMATOID ARTHRITIS
     Dosage: 50 MG, WEEKLY
     Route: 058
     Dates: start: 20080701, end: 20101101
  2. METHOTREXATE [Concomitant]
     Indication: RHEUMATOID ARTHRITIS
     Dosage: 20 MG, WEEKLY
     Route: 058
     Dates: start: 20050101, end: 20101101
  3. PREDNISOLONE [Concomitant]
     Indication: RHEUMATOID ARTHRITIS
     Dosage: 5 MG, 1X/DAY
     Route: 048
     Dates: start: 20000101, end: 20101101
  4. OXYCODONE HCL [Concomitant]
     Indication: SPINAL COLUMN STENOSIS
     Dosage: 40 MG, 1X/DAY
     Route: 048
     Dates: start: 20090101, end: 20101101

REACTIONS (2)
  - HYPOXIA [None]
  - PNEUMONIA PNEUMOCOCCAL [None]
